FAERS Safety Report 4905019-X (Version None)
Quarter: 2006Q1

REPORT INFORMATION
  Report Type: 
  Country: None (occurrence: None)
  Receive Date: 20060208
  Receipt Date: 20051104
  Transmission Date: 20060701
  Serious: Yes (Hospitalization, Other)
  Sender: FDA-Public Use
  Company Number: US-GLAXOSMITHKLINE-A0580914A

PATIENT
  Age: 74 Year
  Sex: Female
  Weight: 60 kg

DRUGS (9)
  1. PAROXETINE HCL [Suspect]
     Indication: DEPRESSION
     Dosage: 30MG PER DAY
     Route: 048
  2. ADVAIR DISKUS 100/50 [Concomitant]
  3. VENTOLIN [Concomitant]
  4. PREMARIN [Concomitant]
  5. SINGULAIR [Concomitant]
  6. HYDROCODONE BITARTRATE [Concomitant]
  7. PREVACID [Concomitant]
  8. LISINOPRIL [Concomitant]
  9. DETROL LA [Concomitant]

REACTIONS (1)
  - CONVULSION [None]
